FAERS Safety Report 7299752-5 (Version None)
Quarter: 2011Q1

REPORT INFORMATION
  Report Type: 
  Country: None (occurrence: None)
  Receive Date: 20110209
  Receipt Date: 20110201
  Transmission Date: 20110831
  Serious: Yes (Other)
  Sender: FDA-Public Use
  Company Number: 026683

PATIENT
  Sex: Female
  Weight: 88 kg

DRUGS (5)
  1. METHOTREXATE [Concomitant]
  2. FOLIC ACID [Concomitant]
  3. CIMZIA [Suspect]
     Indication: RHEUMATOID ARTHRITIS
     Dosage: 200 MG, NO OF DOSES RECEIVED: 27 SUBCUTANEOUS
     Route: 058
     Dates: start: 20100121
  4. PREDNISOLONE [Concomitant]
  5. IBUPROFEN [Concomitant]

REACTIONS (1)
  - DERMATITIS ALLERGIC [None]
